FAERS Safety Report 19206735 (Version 2)
Quarter: 2022Q2

REPORT INFORMATION
  Report Type: Spontaneous
  Country: US (occurrence: US)
  Receive Date: 20210503
  Receipt Date: 20220428
  Transmission Date: 20220720
  Serious: No
  Sender: FDA-Public Use
  Company Number: US-PFIZER INC-2021393293

PATIENT
  Sex: Female

DRUGS (1)
  1. XELJANZ XR [Suspect]
     Active Substance: TOFACITINIB CITRATE
     Indication: Rheumatoid arthritis
     Dosage: 11 MG, 1X/DAY
     Route: 048
     Dates: start: 2018

REACTIONS (6)
  - Condition aggravated [Recovered/Resolved]
  - Musculoskeletal discomfort [Recovered/Resolved]
  - Aphonia [Unknown]
  - Dysphonia [Unknown]
  - Hypersensitivity [Unknown]
  - Upper-airway cough syndrome [Unknown]
